FAERS Safety Report 16012839 (Version 1)
Quarter: 2019Q1

REPORT INFORMATION
  Report Type: Spontaneous
  Country: NO (occurrence: NO)
  Receive Date: 20190227
  Receipt Date: 20190227
  Transmission Date: 20190418
  Serious: Yes (Life-Threatening, Other)
  Sender: FDA-Public Use
  Company Number: NO-PFIZER INC-2019088987

PATIENT
  Age: 20 Year
  Sex: Female
  Weight: 105 kg

DRUGS (4)
  1. ZADITEN [Concomitant]
     Active Substance: KETOTIFEN FUMARATE
     Dates: start: 2015
  2. LOETTE-28 [Suspect]
     Active Substance: ETHINYL ESTRADIOL\LEVONORGESTREL
     Dosage: 1 DF, 1X/DAY
     Route: 048
     Dates: start: 201711, end: 201811
  3. AVAMYS [Concomitant]
     Active Substance: FLUTICASONE FUROATE
     Dates: start: 2015
  4. AERIUS (DESLORATADINE) [Concomitant]
     Active Substance: DESLORATADINE
     Dates: start: 2015

REACTIONS (3)
  - Mood swings [Recovered/Resolved]
  - Suicidal ideation [Recovered/Resolved]
  - Depression [Recovered/Resolved]

NARRATIVE: CASE EVENT DATE: 201802
